FAERS Safety Report 18375951 (Version 1)
Quarter: 2020Q4

REPORT INFORMATION
  Report Type: Spontaneous
  Country: US (occurrence: US)
  Receive Date: 20201013
  Receipt Date: 20201013
  Transmission Date: 20210114
  Serious: No
  Sender: FDA-Public Use
  Company Number: US-CADILA HEALTHCARE LIMITED-US-ZYDUS-056039

PATIENT
  Sex: Female

DRUGS (1)
  1. LABETALOL HYDROCHLORIDE 200 MILLIGRAM TABLET [Suspect]
     Active Substance: LABETALOL HYDROCHLORIDE
     Indication: PRODUCT USED FOR UNKNOWN INDICATION
     Dosage: UNK
     Route: 048
     Dates: start: 2020

REACTIONS (4)
  - Tremor [Unknown]
  - Nasal congestion [Unknown]
  - Feeling hot [Unknown]
  - Flushing [Unknown]

NARRATIVE: CASE EVENT DATE: 2020
